FAERS Safety Report 16628020 (Version 2)
Quarter: 2019Q3

REPORT INFORMATION
  Report Type: Spontaneous
  Country: US (occurrence: US)
  Receive Date: 20190724
  Receipt Date: 20190806
  Transmission Date: 20191004
  Serious: Yes (Hospitalization)
  Sender: FDA-Public Use
  Company Number: US-SAOL THERAPEUTICS-2019SAO00294

PATIENT
  Age: 57 Year
  Sex: Male

DRUGS (8)
  1. LIORESAL [Suspect]
     Active Substance: BACLOFEN
     Dosage: 435.61 ?G, \DAY \
     Route: 037
     Dates: start: 20190716, end: 20190716
  2. LIORESAL [Suspect]
     Active Substance: BACLOFEN
     Dosage: 347.94 ?G, \DAY (DOSE REDUCED 20%)
     Route: 037
     Dates: start: 20190716, end: 20190717
  3. LIORESAL [Suspect]
     Active Substance: BACLOFEN
     Dosage: 99.90 ?G, \DAY; (-71.3%)
     Route: 037
     Dates: start: 20190717, end: 20190717
  4. DILAUDID [Suspect]
     Active Substance: HYDROMORPHONE HYDROCHLORIDE
     Dosage: 2.4693 MG, \DAY
     Route: 037
     Dates: start: 20190716, end: 20190716
  5. DILAUDID [Suspect]
     Active Substance: HYDROMORPHONE HYDROCHLORIDE
     Dosage: UNK MG, \DAY-MINIMUM RATE
     Route: 037
     Dates: start: 20190717
  6. DILAUDID [Suspect]
     Active Substance: HYDROMORPHONE HYDROCHLORIDE
     Dosage: 1.9723 MG, \DAY (DOSE REDUCED 20%)
     Route: 037
     Dates: start: 20190716, end: 20190717
  7. LIORESAL [Suspect]
     Active Substance: BACLOFEN
     Dosage: UNK ?G, \DAY; MINIMUM RATE
     Route: 037
     Dates: start: 20190717
  8. DILAUDID [Suspect]
     Active Substance: HYDROMORPHONE HYDROCHLORIDE
     Dosage: 0.5663 MG, \DAY
     Route: 037
     Dates: start: 20190717, end: 20190717

REACTIONS (1)
  - Subarachnoid haemorrhage [Recovered/Resolved]

NARRATIVE: CASE EVENT DATE: 20190716
